FAERS Safety Report 14547289 (Version 1)
Quarter: 2018Q1

REPORT INFORMATION
  Report Type: Spontaneous
  Country: CH (occurrence: CH)
  Receive Date: 20180219
  Receipt Date: 20180219
  Transmission Date: 20180509
  Serious: Yes (Death)
  Sender: FDA-Public Use
  Company Number: PHHY2018CH021617

PATIENT
  Age: 63 Year
  Sex: Female

DRUGS (17)
  1. METHOTREXATE (METHOTREXATE SODIUM) [Suspect]
     Active Substance: METHOTREXATE SODIUM
     Indication: DIFFUSE LARGE B-CELL LYMPHOMA
     Dosage: 6800 MG, UNK
     Route: 042
     Dates: start: 20180119
  2. MABTHERA [Suspect]
     Active Substance: RITUXIMAB
     Indication: DIFFUSE LARGE B-CELL LYMPHOMA
     Dosage: 700 MG, UNK
     Route: 042
     Dates: start: 20180119
  3. TAVEGYL [Suspect]
     Active Substance: CLEMASTINE FUMARATE
     Indication: CHEMOTHERAPY
     Dosage: 4 MG, UNK
     Route: 042
     Dates: start: 20180119
  4. VALTREX [Concomitant]
     Active Substance: VALACYCLOVIR HYDROCHLORIDE
     Indication: PRODUCT USED FOR UNKNOWN INDICATION
     Dosage: 500 MG, Q12H
     Route: 048
     Dates: start: 20180113, end: 20180121
  5. ZYLORIC [Concomitant]
     Active Substance: ALLOPURINOL
     Indication: CHEMOTHERAPY CYTOKINE PROPHYLAXIS
     Dosage: 300 MG, QD
     Route: 048
     Dates: start: 20180119, end: 20180125
  6. BELOC-ZOC FORTE [Concomitant]
     Indication: PRODUCT USED FOR UNKNOWN INDICATION
     Dosage: 100 MG, Q12H
     Route: 048
     Dates: start: 20180114, end: 20180123
  7. OXYNORM [Concomitant]
     Active Substance: OXYCODONE HYDROCHLORIDE
     Indication: ANALGESIC THERAPY
     Dosage: 5 MG, Q6H
     Route: 048
     Dates: start: 20180119, end: 20180121
  8. LASIX [Concomitant]
     Active Substance: FUROSEMIDE
     Indication: FLUID OVERLOAD
     Dosage: 3375 MG, QD
     Route: 042
     Dates: start: 20180118, end: 20180123
  9. ONDANSETRON [Concomitant]
     Active Substance: ONDANSETRON
     Indication: PROPHYLAXIS OF NAUSEA AND VOMITING
     Dosage: 8 MG, QD
     Route: 042
     Dates: start: 20180119, end: 20180122
  10. DAFALGAN [Concomitant]
     Active Substance: ACETAMINOPHEN
     Indication: ANALGESIC THERAPY
     Dosage: 1 G, Q6H
     Route: 048
     Dates: start: 20180119, end: 20180123
  11. SOLU-MEDROL [Concomitant]
     Active Substance: METHYLPREDNISOLONE SODIUM SUCCINATE
     Indication: CHEMOTHERAPY
     Dosage: 125 MG, QD
     Route: 042
     Dates: start: 20180119, end: 20180122
  12. NEXIUM [Concomitant]
     Active Substance: ESOMEPRAZOLE MAGNESIUM
     Indication: PRODUCT USED FOR UNKNOWN INDICATION
     Dosage: 40 MG, QD
     Route: 048
     Dates: start: 20180119, end: 20180121
  13. VORAXAZE [Concomitant]
     Active Substance: GLUCARPIDASE
     Indication: CHEMOTHERAPY
     Dosage: 4000 IU, UNK
     Route: 042
     Dates: start: 20180120, end: 20180120
  14. CLEXANE [Concomitant]
     Active Substance: ENOXAPARIN SODIUM
     Indication: THROMBOSIS PROPHYLAXIS
     Dosage: 40 MG, QD
     Route: 058
     Dates: start: 20180113, end: 20180121
  15. METOLAZON [Concomitant]
     Active Substance: METOLAZONE
     Indication: RENAL FAILURE
     Dosage: 10 MG, UNK
     Route: 048
     Dates: start: 20180123, end: 20180123
  16. CYTOSAR [Concomitant]
     Active Substance: CYTARABINE
     Indication: DIFFUSE LARGE B-CELL LYMPHOMA
     Dosage: 4000 MG, UNK
     Route: 042
     Dates: start: 20180120, end: 20180120
  17. KEPPRA [Concomitant]
     Active Substance: LEVETIRACETAM
     Indication: EPILEPSY
     Dosage: 1000 MG, Q12H
     Route: 048
     Dates: end: 20180123

REACTIONS (1)
  - Toxicity to various agents [Fatal]

NARRATIVE: CASE EVENT DATE: 20180120
